FAERS Safety Report 6447048-3 (Version None)
Quarter: 2009Q4

REPORT INFORMATION
  Report Type: 
  Country: None (occurrence: None)
  Receive Date: 20091119
  Receipt Date: 20091112
  Transmission Date: 20100525
  Serious: Yes (Hospitalization)
  Sender: FDA-Public Use
  Company Number: GXKR2009CA12427

PATIENT
  Age: 53 Year
  Sex: Male

DRUGS (1)
  1. CEFPROZIL (NGX) [Suspect]
     Route: 065

REACTIONS (15)
  - ACANTHOSIS [None]
  - ACUTE GENERALISED EXANTHEMATOUS PUSTULOSIS [None]
  - ACUTE LUNG INJURY [None]
  - ACUTE RESPIRATORY FAILURE [None]
  - DIURETIC THERAPY [None]
  - EJECTION FRACTION DECREASED [None]
  - FATIGUE [None]
  - HYPOTENSION [None]
  - LEUKOCYTOSIS [None]
  - PULMONARY OEDEMA [None]
  - PYREXIA [None]
  - RASH PUSTULAR [None]
  - SKIN OEDEMA [None]
  - TACHYCARDIA [None]
  - TONGUE DISORDER [None]
